FAERS Safety Report 4953400-5 (Version None)
Quarter: 2006Q1

REPORT INFORMATION
  Report Type: 
  Country: None (occurrence: None)
  Receive Date: 20060324
  Receipt Date: 20060317
  Transmission Date: 20060701
  Serious: Yes (Hospitalization)
  Sender: FDA-Public Use
  Company Number: PHEH2006US03629

PATIENT
  Age: 73 Year
  Sex: Male

DRUGS (2)
  1. DIOVAN [Suspect]
     Indication: HYPERTENSION
     Dosage: UNK, QD
     Route: 048
     Dates: start: 20020101, end: 20050101
  2. ASPIRIN [Concomitant]

REACTIONS (5)
  - ASTHENIA [None]
  - BLOOD PRESSURE FLUCTUATION [None]
  - DIPLOPIA [None]
  - EPISTAXIS [None]
  - TRANSIENT ISCHAEMIC ATTACK [None]
